FAERS Safety Report 6589859-X (Version None)
Quarter: 2010Q1

REPORT INFORMATION
  Report Type: 
  Country: None (occurrence: None)
  Receive Date: 20100219
  Receipt Date: 20100211
  Transmission Date: 20100710
  Serious: Yes (Other)
  Sender: FDA-Public Use
  Company Number: FR-JNJFOC-20100206549

PATIENT
  Sex: Female

DRUGS (1)
  1. SPORANOX [Suspect]
     Indication: BRONCHOPULMONARY ASPERGILLOSIS

REACTIONS (6)
  - ALANINE AMINOTRANSFERASE INCREASED [None]
  - ANAEMIA [None]
  - LEUKOPENIA [None]
  - RHABDOMYOLYSIS [None]
  - THROMBOCYTOPENIA [None]
  - WRONG TECHNIQUE IN DRUG USAGE PROCESS [None]
